FAERS Safety Report 5705219-5 (Version None)
Quarter: 2008Q2

REPORT INFORMATION
  Report Type: 
  Country: None (occurrence: None)
  Receive Date: 20080410
  Receipt Date: 20080402
  Transmission Date: 20081010
  Serious: Yes (Death, Hospitalization)
  Sender: FDA-Public Use
  Company Number: TW-JNJFOC-20080100306

PATIENT
  Age: 66 Year
  Sex: Male

DRUGS (17)
  1. DECITABINE  (DECITABINE) LYOPHILIZED POWDER [Suspect]
     Indication: ACUTE MYELOID LEUKAEMIA
     Dosage: 33.6 MG, 1 IN 1 DAY, INTRAVENOUS
     Route: 042
     Dates: start: 20071217, end: 20071221
  2. HYDROXYUREA  (HYDROXYCARBAMIDE) UNSPECIFIED [Suspect]
     Indication: ACUTE MYELOID LEUKAEMIA
     Dosage: 500 MG, 3 IN 1 DAY, ORAL
     Route: 048
     Dates: start: 20071204, end: 20071224
  3. ALLOPURINOL [Concomitant]
  4. PIOGLITAZONE HCL [Concomitant]
  5. POTASSIUM CHLORIDE [Concomitant]
  6. CIMETIDINE [Concomitant]
  7. GLYCYRRHIZA (GLYCYRRHIZA EXTRACT) [Concomitant]
  8. METOCLOPRAMIDE [Concomitant]
  9. BETAMETHASONE [Concomitant]
  10. BACLOFEN [Concomitant]
  11. TRAMADOL HCL [Concomitant]
  12. PIROXICAM [Concomitant]
  13. SIMETHICONE (DIMETICONE, ACTIVATED) [Concomitant]
  14. ETODOLAC [Concomitant]
  15. SENNA (SENNA) [Concomitant]
  16. PROPOXYPHENE HCL AND ACETAMINOPHEN [Concomitant]
  17. KAOLIN (KAOLIN) [Concomitant]

REACTIONS (7)
  - CEREBRAL HAEMORRHAGE [None]
  - EPISTAXIS [None]
  - FEBRILE NEUTROPENIA [None]
  - HEAD INJURY [None]
  - HEADACHE [None]
  - LEUKOCYTOSIS [None]
  - THROMBOCYTOPENIA [None]
